FAERS Safety Report 5652918-X (Version None)
Quarter: 2008Q1

REPORT INFORMATION
  Report Type: 
  Country: None (occurrence: None)
  Receive Date: 20080306
  Receipt Date: 20080303
  Transmission Date: 20080703
  Serious: Yes (Death, Other)
  Sender: FDA-Public Use
  Company Number: PHBS2007JP08915

PATIENT

DRUGS (1)
  1. GLEEVEC [Suspect]
     Indication: ACUTE LYMPHOCYTIC LEUKAEMIA
     Dosage: 400 MG/DAY
     Route: 048

REACTIONS (3)
  - DEATH [None]
  - NAUSEA [None]
  - ONCOLOGIC COMPLICATION [None]
